FAERS Safety Report 9866829 (Version 4)
Quarter: 2014Q2

REPORT INFORMATION
  Report Type: Report from Study
  Country: AU (occurrence: AU)
  Receive Date: 20140204
  Receipt Date: 20140612
  Transmission Date: 20141212
  Serious: Yes (Hospitalization)
  Sender: FDA-Public Use
  Company Number: AU-ROCHE-1319476

PATIENT
  Age: 67 Year
  Sex: Male
  Weight: 70 kg

DRUGS (1)
  1. ACTEMRA [Suspect]
     Indication: RHEUMATOID ARTHRITIS
     Route: 042
     Dates: start: 20130520, end: 20140611

REACTIONS (7)
  - Diarrhoea [Recovered/Resolved]
  - Dehydration [Recovering/Resolving]
  - Abdominal pain lower [Not Recovered/Not Resolved]
  - Weight decreased [Unknown]
  - Herpes virus infection [Not Recovered/Not Resolved]
  - Oral herpes [Not Recovered/Not Resolved]
  - Skin disorder [Unknown]
